FAERS Safety Report 4946144-7 (Version None)
Quarter: 2006Q1

REPORT INFORMATION
  Report Type: 
  Country: None (occurrence: None)
  Receive Date: 20060118
  Receipt Date: 20050505
  Transmission Date: 20060701
  Serious: Yes (Other)
  Sender: FDA-Public Use
  Company Number: BDI-007160

PATIENT
  Age: 54 Year
  Sex: Female

DRUGS (3)
  1. PROHANCE [Suspect]
     Indication: HEADACHE
     Dosage: 15 ML ONCE IV
     Route: 042
     Dates: start: 20050430, end: 20050430
  2. PROHANCE [Suspect]
     Indication: NUCLEAR MAGNETIC RESONANCE IMAGING BRAIN
     Dosage: 15 ML ONCE IV
     Route: 042
     Dates: start: 20050430, end: 20050430
  3. PROHANCE [Suspect]
     Indication: VISION BLURRED
     Dosage: 15 ML ONCE IV
     Route: 042
     Dates: start: 20050430, end: 20050430

REACTIONS (6)
  - ERYTHEMA [None]
  - FEELING HOT [None]
  - FLUSHING [None]
  - NAUSEA [None]
  - PRURITUS [None]
  - VOMITING [None]
